FAERS Safety Report 22231974 (Version 1)
Quarter: 2023Q2

REPORT INFORMATION
  Report Type: Spontaneous
  Country: CA (occurrence: None)
  Receive Date: 20230420
  Receipt Date: 20230420
  Transmission Date: 20230721
  Serious: Yes (Other)
  Sender: FDA-Public Use
  Company Number: CA-ROCHE-3332349

PATIENT
  Age: 39 Year
  Sex: Female

DRUGS (8)
  1. RITUXIMAB [Suspect]
     Active Substance: RITUXIMAB
     Indication: Autoimmune pancreatitis
     Route: 041
  2. ATORVASTATIN [Concomitant]
     Active Substance: ATORVASTATIN
     Route: 048
  3. ESCITALOPRAM [Concomitant]
     Active Substance: ESCITALOPRAM OXALATE
  4. HUMALOG [Concomitant]
     Active Substance: INSULIN LISPRO
  5. MESALAMINE [Concomitant]
     Active Substance: MESALAMINE
  6. PANTOPRAZOLE [Concomitant]
     Active Substance: PANTOPRAZOLE
  7. TOUJEO [Concomitant]
     Active Substance: INSULIN GLARGINE
     Route: 058
  8. METFORMIN [Concomitant]
     Active Substance: METFORMIN HYDROCHLORIDE

REACTIONS (6)
  - Abdominal pain [Recovered/Resolved]
  - Chills [Recovered/Resolved]
  - General physical health deterioration [Recovered/Resolved]
  - Off label use [Unknown]
  - Pancreatitis chronic [Recovered/Resolved]
  - Therapeutic product effect decreased [Recovered/Resolved]
